FAERS Safety Report 13157667 (Version 1)
Quarter: 2017Q1

REPORT INFORMATION
  Report Type: Spontaneous
  Country: US (occurrence: US)
  Receive Date: 20170127
  Receipt Date: 20170127
  Transmission Date: 20170428
  Serious: No
  Sender: FDA-Public Use
  Company Number: US-JNJFOC-20161211522

PATIENT
  Age: 78 Year
  Sex: Female
  Weight: 51.26 kg

DRUGS (1)
  1. SIMPONI ARIA [Suspect]
     Active Substance: GOLIMUMAB
     Indication: RHEUMATOID ARTHRITIS
     Route: 042
     Dates: start: 20161214

REACTIONS (1)
  - Vascular access complication [Recovered/Resolved]

NARRATIVE: CASE EVENT DATE: 20161212
